FAERS Safety Report 8796831 (Version 2)
Quarter: 2014Q2

REPORT INFORMATION
  Report Type: Report from Study
  Country: DE (occurrence: DE)
  Receive Date: 20120917
  Receipt Date: 20140430
  Transmission Date: 20141212
  Serious: Yes (Hospitalization)
  Sender: FDA-Public Use
  Company Number: DE-ROCHE-1127122

PATIENT
  Age: 47 Year
  Sex: Female
  Weight: 54 kg

DRUGS (3)
  1. BEVACIZUMAB [Suspect]
     Indication: OVARIAN CANCER
     Dosage: 900 MG, LAST DOSE PRIOR TO SAE: 09/AUG/2012
     Route: 042
     Dates: start: 20120809, end: 20120809
  2. TAXOL [Suspect]
     Indication: OVARIAN CANCER
     Dosage: 296 MG. LAST DOSE PRIOR TO SAE: 09/AUG/2012
     Route: 042
     Dates: start: 20120711, end: 20120809
  3. CARBOPLATIN [Suspect]
     Indication: OVARIAN CANCER
     Dosage: LAST DOSE PRIOR TO SAE: 09/AUG/2012
     Route: 042
     Dates: start: 20120711, end: 20120809

REACTIONS (1)
  - Renal failure acute [Recovered/Resolved]
